FAERS Safety Report 9659194 (Version 2)
Quarter: 2013Q4

REPORT INFORMATION
  Report Type: Spontaneous
  Country: BR (occurrence: BR)
  Receive Date: 20131031
  Receipt Date: 20131031
  Transmission Date: 20140711
  Serious: Yes (Hospitalization, Other)
  Sender: FDA-Public Use
  Company Number: BR-JNJFOC-20131011960

PATIENT
  Age: 75 Day
  Sex: Male
  Weight: 7 kg

DRUGS (2)
  1. TYLENOL GOTAS [Suspect]
     Indication: PYREXIA
     Route: 048
     Dates: start: 20131016, end: 20131016
  2. TYLENOL GOTAS [Suspect]
     Indication: PAIN
     Route: 048
     Dates: start: 20131016, end: 20131016

REACTIONS (4)
  - Accidental exposure to product [Recovered/Resolved]
  - Overdose [Recovered/Resolved]
  - Vomiting [Recovered/Resolved]
  - Product dropper issue [Recovered/Resolved]
